FAERS Safety Report 9814838 (Version 2)
Quarter: 2014Q2

REPORT INFORMATION
  Report Type: Spontaneous
  Country: US (occurrence: US)
  Receive Date: 20140113
  Receipt Date: 20140617
  Transmission Date: 20141212
  Serious: Yes (Hospitalization, Other)
  Sender: FDA-Public Use
  Company Number: US-GLAXOSMITHKLINE-A1055780A

PATIENT
  Age: 69 Year
  Sex: Male
  Weight: 90.9 kg

DRUGS (5)
  1. VOTRIENT [Suspect]
     Indication: RENAL CELL CARCINOMA
     Dosage: 200MG FOUR TIMES PER DAY
     Route: 048
     Dates: start: 201310
  2. SYNTHROID [Concomitant]
  3. TYLENOL [Concomitant]
  4. NORCO [Concomitant]
  5. SYNTHROID [Concomitant]

REACTIONS (12)
  - Hypertension [Recovering/Resolving]
  - Headache [Recovering/Resolving]
  - Nausea [Recovering/Resolving]
  - Vomiting [Recovering/Resolving]
  - Sluggishness [Recovering/Resolving]
  - Decreased appetite [Recovering/Resolving]
  - Dysgeusia [Recovering/Resolving]
  - Pain [Recovering/Resolving]
  - Adverse drug reaction [Recovering/Resolving]
  - Hypertensive crisis [Unknown]
  - Asthenia [Unknown]
  - Fatigue [Unknown]
